FAERS Safety Report 7672596-8 (Version None)
Quarter: 2011Q3

REPORT INFORMATION
  Report Type: 
  Country: None (occurrence: None)
  Receive Date: 20110809
  Receipt Date: 20110804
  Transmission Date: 20111222
  Serious: Yes (Death, Hospitalization)
  Sender: FDA-Public Use
  Company Number: US-AMGEN-USASP2011007321

PATIENT
  Age: 78 Year
  Sex: Female

DRUGS (15)
  1. ASPIRIN [Concomitant]
  2. OXYBUTYNIN [Concomitant]
  3. LEVAQUIN [Concomitant]
  4. CELEXA [Concomitant]
  5. LASIX [Concomitant]
  6. COUMADIN [Concomitant]
  7. PROTONIX [Concomitant]
  8. LORATADINE [Concomitant]
  9. CORTICOSTEROIDS [Concomitant]
     Indication: IDIOPATHIC THROMBOCYTOPENIC PURPURA
  10. FLAGYL [Concomitant]
  11. LACRI-LUBE [Concomitant]
  12. CARDIZEM [Concomitant]
  13. NPLATE [Suspect]
     Indication: IDIOPATHIC THROMBOCYTOPENIC PURPURA
     Dosage: 1 A?G/KG, UNK
     Dates: start: 20100901, end: 20110119
  14. INSULIN [Concomitant]
  15. FLORASTOR [Concomitant]

REACTIONS (5)
  - DEATH [None]
  - CEREBROVASCULAR ACCIDENT [None]
  - LETHARGY [None]
  - ASTHENIA [None]
  - HOSPITALISATION [None]
